FAERS Safety Report 11750924 (Version 1)
Quarter: 2015Q4

REPORT INFORMATION
  Report Type: Spontaneous
  Country: US (occurrence: US)
  Receive Date: 20151118
  Receipt Date: 20151118
  Transmission Date: 20160304
  Serious: Yes (Other)
  Sender: FDA-Public Use
  Company Number: US-AMGEN-USASP2015121239

PATIENT
  Sex: Female

DRUGS (22)
  1. VALSARTAN. [Concomitant]
     Active Substance: VALSARTAN
     Dosage: 80 MG, UNK
  2. FUROSEMIDE. [Concomitant]
     Active Substance: FUROSEMIDE
     Dosage: 150 MG, UNK
  3. HYOMAX [Concomitant]
     Active Substance: HYOSCYAMINE SULFATE
     Dosage: 0.125 M, UNK
  4. WARFARIN SODIUM. [Concomitant]
     Active Substance: WARFARIN SODIUM
     Dosage: 5 MG, UNK
  5. RECLAST [Concomitant]
     Active Substance: ZOLEDRONIC ACID
     Dosage: 5 MG/10, UNK
  6. AZOPT [Concomitant]
     Active Substance: BRINZOLAMIDE
     Dosage: 1 %, UNK
  7. ENBREL [Suspect]
     Active Substance: ETANERCEPT
     Indication: ARTHROPATHY
     Dosage: 50 MG, QWK
     Route: 058
     Dates: start: 20130221
  8. ALLOPURINOL. [Concomitant]
     Active Substance: ALLOPURINOL
     Dosage: 300 MG, UNK
  9. ECOTRIN [Concomitant]
     Active Substance: ASPIRIN
     Dosage: 325 MG, UNK
  10. DIAZEPAM. [Concomitant]
     Active Substance: DIAZEPAM
     Dosage: 2 MG, UNK
  11. MAGNESIUM CARBONATE [Concomitant]
     Active Substance: MAGNESIUM CARBONATE
     Dosage: UNK
  12. TYLENOL [Concomitant]
     Active Substance: ACETAMINOPHEN
     Dosage: 325 MG, UNK
  13. CLINDAMYCIN HCL [Concomitant]
     Active Substance: CLINDAMYCIN HYDROCHLORIDE
     Dosage: 150 MG, UNK
  14. DIOVAN [Concomitant]
     Active Substance: VALSARTAN
     Dosage: 80 MG, UNK
  15. PREDNISONE. [Concomitant]
     Active Substance: PREDNISONE
     Dosage: 20 MG, UNK
  16. SPIRIVA [Concomitant]
     Active Substance: TIOTROPIUM BROMIDE MONOHYDRATE
     Dosage: 18 M, UNK
  17. SYMBICORT [Concomitant]
     Active Substance: BUDESONIDE\FORMOTEROL FUMARATE DIHYDRATE
     Dosage: 160-4.5
  18. TOPROL XL [Concomitant]
     Active Substance: METOPROLOL SUCCINATE
     Dosage: 50 MG, UNK
  19. ZETIA [Concomitant]
     Active Substance: EZETIMIBE
     Dosage: 10 MG, UNK
  20. ALUMINUM CHLORIDE [Concomitant]
     Active Substance: ALUMINUM CHLORIDE
     Dosage: UNK
  21. LUMIGAN [Concomitant]
     Active Substance: BIMATOPROST
     Dosage: 0.01 %, UNK
  22. METFORMIN HCL [Concomitant]
     Active Substance: METFORMIN HYDROCHLORIDE
     Dosage: 500 MG, UNK

REACTIONS (2)
  - Surgery [Unknown]
  - Off label use [Unknown]
